FAERS Safety Report 9250337 (Version 1)
Quarter: 2013Q2

REPORT INFORMATION
  Report Type: Spontaneous
  Country: US (occurrence: None)
  Receive Date: 20130419
  Receipt Date: 20130419
  Transmission Date: 20140414
  Serious: Yes (Life-Threatening, Hospitalization)
  Sender: FDA-Public Use
  Company Number: None

PATIENT
  Age: 19 Year
  Sex: Female
  Weight: 158.76 kg

DRUGS (2)
  1. LATUDA 40 MG SUNOVION [Suspect]
     Indication: FLASHBACK
     Route: 048
     Dates: start: 20110829, end: 20120417
  2. LATUDA 40 MG SUNOVION [Suspect]
     Indication: FLASHBACK
     Route: 048
     Dates: start: 20110829, end: 20120417

REACTIONS (6)
  - Suicidal ideation [None]
  - Self injurious behaviour [None]
  - Vomiting [None]
  - Pyrexia [None]
  - Chills [None]
  - Migraine [None]
